FAERS Safety Report 19473666 (Version 5)
Quarter: 2021Q4

REPORT INFORMATION
  Report Type: Report from Study
  Country: CA (occurrence: CA)
  Receive Date: 20210629
  Receipt Date: 20211004
  Transmission Date: 20220304
  Serious: Yes (Other)
  Sender: FDA-Public Use
  Company Number: CA-JNJFOC-20210652213

PATIENT
  Age: 23 Year
  Sex: Female
  Weight: 85 kg

DRUGS (4)
  1. REMICADE [Suspect]
     Active Substance: INFLIXIMAB
     Indication: Ankylosing spondylitis
     Route: 042
     Dates: start: 20181029
  2. REMICADE [Suspect]
     Active Substance: INFLIXIMAB
     Indication: Juvenile idiopathic arthritis
     Route: 042
     Dates: start: 20200826
  3. REMICADE [Suspect]
     Active Substance: INFLIXIMAB
     Dosage: PATIENT WOULD RECEIVE 200 MG STAT TO SUPPLEMENT, THE DOSE RECEIVED ON 07/JUL/2021 AT 300 MG.
     Route: 042
     Dates: start: 20210707
  4. REMICADE [Suspect]
     Active Substance: INFLIXIMAB
     Route: 042
     Dates: start: 20210709

REACTIONS (6)
  - Pyelonephritis [Recovered/Resolved]
  - Ankylosing spondylitis [Unknown]
  - Streptococcal infection [Recovered/Resolved]
  - Exposure during pregnancy [Recovered/Resolved]
  - Off label use [Unknown]
  - Product use issue [Unknown]

NARRATIVE: CASE EVENT DATE: 20181029
